FAERS Safety Report 14447009 (Version 2)
Quarter: 2018Q1

REPORT INFORMATION
  Report Type: Spontaneous
  Country: JP (occurrence: JP)
  Receive Date: 20180126
  Receipt Date: 20180207
  Transmission Date: 20180509
  Serious: Yes (Other)
  Sender: FDA-Public Use
  Company Number: JP-BAYER-2018-015398

PATIENT

DRUGS (2)
  1. IMIDAPRIL HYDROCHLORIDE [Suspect]
     Active Substance: IMIDAPRIL HYDROCHLORIDE
  2. BAYASPIRIN 100 MG [Suspect]
     Active Substance: ASPIRIN
     Route: 048

REACTIONS (4)
  - Blood potassium increased [None]
  - Pyrexia [None]
  - Haemorrhage subcutaneous [Recovered/Resolved with Sequelae]
  - Blood pressure increased [None]
